FAERS Safety Report 6433250-3 (Version None)
Quarter: 2009Q4

REPORT INFORMATION
  Report Type: 
  Country: None (occurrence: None)
  Receive Date: 20091109
  Receipt Date: 20091026
  Transmission Date: 20100525
  Serious: Yes (Other)
  Sender: FDA-Public Use
  Company Number: DE-GENENTECH-293518

PATIENT

DRUGS (3)
  1. ACTIVASE [Suspect]
     Indication: CEREBRAL HAEMORRHAGE
     Dosage: 4 MG, SINGLE
  2. ACTIVASE [Suspect]
     Indication: INTRAVENTRICULAR HAEMORRHAGE
     Dosage: 4 MG, Q12H
  3. ACTIVASE [Suspect]
     Indication: HYDROCEPHALUS

REACTIONS (1)
  - INTRAVENTRICULAR HAEMORRHAGE [None]
